FAERS Safety Report 6085296-5 (Version None)
Quarter: 2009Q1

REPORT INFORMATION
  Report Type: 
  Country: None (occurrence: None)
  Receive Date: 20090220
  Receipt Date: 20090217
  Transmission Date: 20090719
  Serious: Yes (Death, Life-Threatening)
  Sender: FDA-Public Use
  Company Number: FR-ASTRAZENECA-2009CG00397

PATIENT
  Age: 25267 Day
  Sex: Female

DRUGS (4)
  1. MOPRAL [Suspect]
     Route: 048
     Dates: start: 20070705, end: 20070717
  2. TRIFLUCAN [Suspect]
     Dates: start: 20070614, end: 20070702
  3. TRIFLUCAN [Suspect]
     Dates: start: 20070715, end: 20070715
  4. TOPALGIC [Suspect]
     Dates: start: 20070702, end: 20070712

REACTIONS (3)
  - ENCEPHALOPATHY [None]
  - MYOCLONUS [None]
  - STATUS EPILEPTICUS [None]
